FAERS Safety Report 17454056 (Version 1)
Quarter: 2020Q1

REPORT INFORMATION
  Report Type: Spontaneous
  Country: CN (occurrence: CN)
  Receive Date: 20200224
  Receipt Date: 20200224
  Transmission Date: 20200409
  Serious: Yes (Other)
  Sender: FDA-Public Use
  Company Number: CN-BAXTER-2020BAX003745

PATIENT
  Age: 65 Year
  Sex: Female
  Weight: 80 kg

DRUGS (12)
  1. ENDOXAN [Suspect]
     Active Substance: CYCLOPHOSPHAMIDE
     Indication: BREAST CANCER FEMALE
     Dosage: ENDOXAN + NS;1 TO 3 CHEMOTHERAPIES
     Route: 042
  2. 0.9% SODIUM CHLORIDE INJECTION [Suspect]
     Active Substance: SODIUM CHLORIDE
     Dosage: ENDOXAN OF 900 MG + NS; 4TH CHEMOTHERAPY
     Route: 042
     Dates: start: 20191212, end: 20191212
  3. 0.9% SODIUM CHLORIDE INJECTION [Suspect]
     Active Substance: SODIUM CHLORIDE
     Dosage: AI SU OF 130 MG + NS; 4TH CHEMOTHERAPY
     Route: 041
     Dates: start: 20191212, end: 20191212
  4. ENDOXAN [Suspect]
     Active Substance: CYCLOPHOSPHAMIDE
     Dosage: ENDOXAN + NS; DOSE RE-INTRODUCED
     Route: 042
  5. AI SU [Suspect]
     Active Substance: DOCETAXEL
     Dosage: AI SU + NS OF 250 ML; 4TH CHEMOTHERAPY
     Route: 041
     Dates: start: 20191212, end: 20191212
  6. AI SU [Suspect]
     Active Substance: DOCETAXEL
     Dosage: AI SU + NS; DOSE RE-INTRODUCED
     Route: 041
  7. 0.9% SODIUM CHLORIDE INJECTION [Suspect]
     Active Substance: SODIUM CHLORIDE
     Indication: MEDICATION DILUTION
     Dosage: ENDOXAN + NS; 1 TO 3 CHEMOTHERAPIES
     Route: 042
  8. 0.9% SODIUM CHLORIDE INJECTION [Suspect]
     Active Substance: SODIUM CHLORIDE
     Dosage: ENDOXAN + NS; DOSE RE-INTRODUCED
     Route: 042
  9. 0.9% SODIUM CHLORIDE INJECTION [Suspect]
     Active Substance: SODIUM CHLORIDE
     Dosage: AI SU + NS; DOSE RE-INTRODUCED
     Route: 041
  10. 0.9% SODIUM CHLORIDE INJECTION [Suspect]
     Active Substance: SODIUM CHLORIDE
     Dosage: AI SU + NS; 1 TO 3 CHEMOTHERAPIES
     Route: 041
  11. AI SU [Suspect]
     Active Substance: DOCETAXEL
     Indication: BREAST CANCER FEMALE
     Dosage: AI SU + NS; 1 TO 3 CHEMOTHERAPIES
     Route: 041
  12. ENDOXAN [Suspect]
     Active Substance: CYCLOPHOSPHAMIDE
     Dosage: ENDOXAN + NS OF 45ML; 4TH CHEMOTHERAPY
     Route: 042
     Dates: start: 20191212, end: 20191212

REACTIONS (2)
  - White blood cell count decreased [Recovered/Resolved]
  - Agranulocytosis [Recovered/Resolved]

NARRATIVE: CASE EVENT DATE: 20191218
